FAERS Safety Report 13334432 (Version 1)
Quarter: 2017Q1

REPORT INFORMATION
  Report Type: Spontaneous
  Country: US (occurrence: US)
  Receive Date: 20170314
  Receipt Date: 20170314
  Transmission Date: 20170428
  Serious: Yes (Hospitalization)
  Sender: FDA-Public Use
  Company Number: US-JNJFOC-20161106498

PATIENT
  Age: 68 Year
  Sex: Male

DRUGS (11)
  1. ELIQUIS [Concomitant]
     Active Substance: APIXABAN
  2. ATIVAN [Concomitant]
     Active Substance: LORAZEPAM
  3. BENADRYL [Concomitant]
     Active Substance: DIPHENHYDRAMINE HYDROCHLORIDE
  4. CELEBREX [Concomitant]
     Active Substance: CELECOXIB
  5. ALLOPURINOL. [Concomitant]
     Active Substance: ALLOPURINOL
  6. COMPAZINE [Concomitant]
     Active Substance: PROCHLORPERAZINE MALEATE
  7. PRINZIDE [Concomitant]
     Active Substance: HYDROCHLOROTHIAZIDE\LISINOPRIL
  8. SENOKOT [Concomitant]
     Active Substance: SENNOSIDES
  9. ATENOLOL. [Concomitant]
     Active Substance: ATENOLOL
  10. IMBRUVICA [Suspect]
     Active Substance: IBRUTINIB
     Indication: B-CELL SMALL LYMPHOCYTIC LYMPHOMA
     Route: 048
     Dates: start: 20160928, end: 20161110
  11. PERCOCET [Concomitant]
     Active Substance: ACETAMINOPHEN\OXYCODONE HYDROCHLORIDE

REACTIONS (5)
  - Oropharyngeal pain [Recovered/Resolved]
  - Myalgia [Recovered/Resolved]
  - Rash erythematous [Recovered/Resolved]
  - Neuropathy peripheral [Unknown]
  - Drug hypersensitivity [Recovered/Resolved]

NARRATIVE: CASE EVENT DATE: 20161004
